FAERS Safety Report 14018972 (Version 1)
Quarter: 2017Q3

REPORT INFORMATION
  Report Type: Report from Study
  Country: US (occurrence: US)
  Receive Date: 20170928
  Receipt Date: 20170928
  Transmission Date: 20171128
  Serious: Yes (Other)
  Sender: FDA-Public Use
  Company Number: US-TORRENT-00003438

PATIENT
  Age: 63 Year
  Sex: Female

DRUGS (2)
  1. PREGABALIN. [Concomitant]
     Active Substance: PREGABALIN
  2. LAMOTRIGINE. [Suspect]
     Active Substance: LAMOTRIGINE

REACTIONS (8)
  - Confusional state [Unknown]
  - Toxicity to various agents [Unknown]
  - Hallucination [Unknown]
  - Diplopia [Unknown]
  - Delusional perception [Unknown]
  - Agitation [Unknown]
  - Aggression [Unknown]
  - Vertigo [Unknown]
